FAERS Safety Report 7683136-1 (Version None)
Quarter: 2011Q3

REPORT INFORMATION
  Report Type: 
  Country: None (occurrence: None)
  Receive Date: 20110815
  Receipt Date: 20110808
  Transmission Date: 20111222
  Serious: Yes (Other)
  Sender: FDA-Public Use
  Company Number: FR-CEPHALON-US020777

PATIENT
  Age: 87 Year
  Sex: Male

DRUGS (2)
  1. FLUOXETINE [Concomitant]
     Route: 048
     Dates: start: 20070701
  2. MODAFINIL [Suspect]
     Indication: NARCOLEPSY
     Route: 048
     Dates: start: 20070401

REACTIONS (1)
  - HYPONATRAEMIA [None]
